FAERS Safety Report 20489610 (Version 1)
Quarter: 2022Q1

REPORT INFORMATION
  Report Type: Spontaneous
  Country: US (occurrence: None)
  Receive Date: 20220217
  Receipt Date: 20220217
  Transmission Date: 20220423
  Serious: Yes (unspecified)
  Sender: FDA-Public Use
  Company Number: None

PATIENT
  Age: 52 Year
  Sex: Female
  Weight: 72 kg

DRUGS (1)
  1. SOTROVIMAB [Suspect]
     Active Substance: SOTROVIMAB
     Indication: COVID-19
     Route: 042
     Dates: start: 20220113, end: 20220113

REACTIONS (6)
  - Arthralgia [None]
  - Inflammatory marker increased [None]
  - Blood immunoglobulin G increased [None]
  - Cardiolipin antibody positive [None]
  - Complement factor C3 increased [None]
  - Contraindicated product administered [None]

NARRATIVE: CASE EVENT DATE: 20220115
